FAERS Safety Report 18009197 (Version 1)
Quarter: 2020Q3

REPORT INFORMATION
  Report Type: Spontaneous
  Country: US (occurrence: US)
  Receive Date: 20200710
  Receipt Date: 20200710
  Transmission Date: 20201103
  Serious: No
  Sender: FDA-Public Use
  Company Number: US-SAOL THERAPEUTICS-2020SAO00068

PATIENT
  Age: 48 Year
  Sex: Male

DRUGS (2)
  1. LIORESAL [Suspect]
     Active Substance: BACLOFEN
     Dosage: 109.9 ?G, \DAY
     Route: 037
     Dates: end: 2020
  2. LIORESAL [Suspect]
     Active Substance: BACLOFEN
     Dosage: 99.9 ?G, \DAY
     Route: 037
     Dates: start: 2020

REACTIONS (6)
  - Mobility decreased [Not Recovered/Not Resolved]
  - Dysstasia [Not Recovered/Not Resolved]
  - Muscle rigidity [Unknown]
  - Device infusion issue [Unknown]
  - Musculoskeletal stiffness [Unknown]
  - Hypotonia [Not Recovered/Not Resolved]

NARRATIVE: CASE EVENT DATE: 20190913
